FAERS Safety Report 12460693 (Version 2)
Quarter: 2016Q2

REPORT INFORMATION
  Report Type: Spontaneous
  Country: US (occurrence: US)
  Receive Date: 20160613
  Receipt Date: 20160622
  Transmission Date: 20160815
  Serious: Yes (Other)
  Sender: FDA-Public Use
  Company Number: US-PFIZER INC-2016294277

PATIENT
  Age: 14 Year
  Sex: Female

DRUGS (1)
  1. GABAPENTIN. [Suspect]
     Active Substance: GABAPENTIN
     Indication: EAR PAIN
     Dosage: 100 MG, 3X/DAY (1-2 CAPSULES)
     Route: 048

REACTIONS (2)
  - Product use issue [Unknown]
  - Hepatic steatosis [Unknown]
